FAERS Safety Report 17932115 (Version 4)
Quarter: 2020Q3

REPORT INFORMATION
  Report Type: Report from Study
  Country: US (occurrence: US)
  Receive Date: 20200623
  Receipt Date: 20200722
  Transmission Date: 20201103
  Serious: Yes (Death, Hospitalization, Other)
  Sender: FDA-Public Use
  Company Number: US-ACTELION-A-US2020-204101

PATIENT
  Age: 71 Year
  Sex: Female
  Weight: 47.17 kg

DRUGS (4)
  1. ORENITRAM [Concomitant]
     Active Substance: TREPROSTINIL
     Dosage: UNK MG, BID
  2. ORENITRAM [Concomitant]
     Active Substance: TREPROSTINIL
     Dosage: .875 MG, TID
  3. ADEMPAS [Concomitant]
     Active Substance: RIOCIGUAT
  4. OPSUMIT [Suspect]
     Active Substance: MACITENTAN
     Indication: PULMONARY ARTERIAL HYPERTENSION
     Dosage: 10 MG, QD
     Route: 048
     Dates: start: 20180104

REACTIONS (22)
  - Abdominal discomfort [Unknown]
  - Dyspnoea exertional [Unknown]
  - Death [Fatal]
  - Dyspnoea [Unknown]
  - Diarrhoea [Unknown]
  - Peripheral swelling [Unknown]
  - Abdominal distension [Recovering/Resolving]
  - Feeding disorder [Unknown]
  - Fluid retention [Unknown]
  - Palpitations [Unknown]
  - Abdominal pain upper [Unknown]
  - Loss of personal independence in daily activities [Unknown]
  - Decreased appetite [Unknown]
  - Dizziness [Unknown]
  - Oedema [Unknown]
  - Blindness transient [Unknown]
  - Dysuria [Unknown]
  - Cough [Unknown]
  - Pulmonary hypertension [Unknown]
  - Dyspnoea at rest [Unknown]
  - Disease progression [Unknown]
  - Fatigue [Unknown]

NARRATIVE: CASE EVENT DATE: 20200709
